FAERS Safety Report 13380091 (Version 2)
Quarter: 2017Q4

REPORT INFORMATION
  Report Type: Spontaneous
  Country: US (occurrence: US)
  Receive Date: 20170328
  Receipt Date: 20171106
  Transmission Date: 20180320
  Serious: Yes (Hospitalization, Other)
  Sender: FDA-Public Use
  Company Number: US-VIFOR (INTERNATIONAL) INC.-VIT-2017-03143

PATIENT
  Age: 70 Year
  Sex: Male
  Weight: 71.73 kg

DRUGS (17)
  1. GLIPIZIDE. [Concomitant]
     Active Substance: GLIPIZIDE
     Dates: start: 20161130
  2. LANTUS [Concomitant]
     Active Substance: INSULIN GLARGINE
     Dates: start: 20170321
  3. CENTRUM [Concomitant]
     Active Substance: VITAMINS
     Dates: start: 20161130
  4. METOPROLOL. [Concomitant]
     Active Substance: METOPROLOL
  5. ACETYLSALICYLIC ACID [Concomitant]
     Active Substance: ASPIRIN
     Dates: start: 20170321
  6. FAMOTIDINE. [Concomitant]
     Active Substance: FAMOTIDINE
     Dates: start: 20161130
  7. VELTASSA [Suspect]
     Active Substance: PATIROMER
     Indication: HYPERKALAEMIA
     Route: 048
     Dates: start: 201701
  8. LATANOPROST. [Concomitant]
     Active Substance: LATANOPROST
     Dates: start: 20161130
  9. VELTASSA [Suspect]
     Active Substance: PATIROMER
     Route: 048
     Dates: start: 20161202
  10. HUMALOG [Concomitant]
     Active Substance: INSULIN LISPRO
     Dates: start: 20161130
  11. NOVOLOG [Concomitant]
     Active Substance: INSULIN ASPART
  12. COLECALCIFEROL [Concomitant]
     Active Substance: CHOLECALCIFEROL
     Dosage: 2000 UNIT
     Dates: start: 20161130
  13. LOSARTAN POTASSIUM. [Concomitant]
     Active Substance: LOSARTAN POTASSIUM
     Dates: start: 20161130
  14. CALCITRIOL. [Concomitant]
     Active Substance: CALCITRIOL
     Dates: start: 20161130
  15. ESCITALOPRAM [Concomitant]
     Active Substance: ESCITALOPRAM OXALATE
     Dates: start: 20161130
  16. LOSARTAN. [Concomitant]
     Active Substance: LOSARTAN
  17. PEPCID [Concomitant]
     Active Substance: FAMOTIDINE

REACTIONS (8)
  - Influenza [Recovered/Resolved]
  - Myalgia [Recovering/Resolving]
  - Headache [Recovering/Resolving]
  - Musculoskeletal pain [Recovering/Resolving]
  - Drug dose omission [Recovered/Resolved]
  - Arterial repair [Recovered/Resolved]
  - Pneumonia [Recovered/Resolved]
  - Pain [Recovered/Resolved]

NARRATIVE: CASE EVENT DATE: 201703
